FAERS Safety Report 20769004 (Version 2)
Quarter: 2022Q2

REPORT INFORMATION
  Report Type: Other
  Country: CN (occurrence: CN)
  Receive Date: 20220429
  Receipt Date: 20220525
  Transmission Date: 20220720
  Serious: Yes (Death, Hospitalization)
  Sender: FDA-Public Use
  Company Number: CN-Blueprint Medicines Corporation-SO-CN-2022-001236

PATIENT

DRUGS (3)
  1. GAVRETO [Suspect]
     Active Substance: PRALSETINIB
     Indication: Non-small cell lung cancer
     Route: 048
     Dates: start: 20220220, end: 20220311
  2. GAVRETO [Suspect]
     Active Substance: PRALSETINIB
     Route: 048
     Dates: start: 20220312, end: 20220407
  3. GAVRETO [Suspect]
     Active Substance: PRALSETINIB
     Route: 048
     Dates: start: 20220408, end: 20220512

REACTIONS (5)
  - Disease progression [Fatal]
  - Pleural effusion [Not Recovered/Not Resolved]
  - Stomatitis [Recovering/Resolving]
  - Chest discomfort [Unknown]
  - Tachypnoea [Unknown]

NARRATIVE: CASE EVENT DATE: 20220312
